FAERS Safety Report 10559021 (Version 1)
Quarter: 2014Q4

REPORT INFORMATION
  Report Type: Spontaneous
  Country: US (occurrence: US)
  Receive Date: 20141103
  Receipt Date: 20141103
  Transmission Date: 20150529
  Serious: Yes (Hospitalization, Other)
  Sender: FDA-Public Use
  Company Number: US-AMGEN-USASP2014083617

PATIENT
  Age: 32 Year
  Sex: Female

DRUGS (4)
  1. HUMIRA [Suspect]
     Active Substance: ADALIMUMAB
     Indication: PRODUCT USED FOR UNKNOWN INDICATION
     Dosage: UNK
     Route: 065
  2. SIMPONI [Suspect]
     Active Substance: GOLIMUMAB
     Indication: PRODUCT USED FOR UNKNOWN INDICATION
     Dosage: UNK
     Route: 065
     Dates: start: 2010
  3. RITUXAN [Suspect]
     Active Substance: RITUXIMAB
     Indication: PRODUCT USED FOR UNKNOWN INDICATION
     Dosage: UNK
     Route: 065
  4. ENBREL [Suspect]
     Active Substance: ETANERCEPT
     Indication: RHEUMATOID ARTHRITIS
     Dosage: 50 MG, QWK
     Route: 065
     Dates: start: 2007, end: 201409

REACTIONS (19)
  - Pain in extremity [Not Recovered/Not Resolved]
  - Sinusitis [Recovered/Resolved]
  - Exostosis [Recovered/Resolved]
  - Meningitis [Recovered/Resolved]
  - Peripheral swelling [Not Recovered/Not Resolved]
  - Endometriosis [Recovered/Resolved]
  - Cyst [Recovered/Resolved]
  - Cartilage injury [Recovered/Resolved]
  - Cubital tunnel syndrome [Recovered/Resolved]
  - Lethargy [Recovered/Resolved]
  - Joint dislocation [Not Recovered/Not Resolved]
  - Weight decreased [Recovered/Resolved]
  - Migraine [Recovered/Resolved]
  - Dyspepsia [Recovered/Resolved]
  - Benign cartilage neoplasm [Not Recovered/Not Resolved]
  - Carpal tunnel syndrome [Recovered/Resolved]
  - Ankle deformity [Not Recovered/Not Resolved]
  - Vein disorder [Recovered/Resolved]
  - Hyperhidrosis [Recovered/Resolved]

NARRATIVE: CASE EVENT DATE: 2007
